FAERS Safety Report 10224545 (Version 1)
Quarter: 2014Q1

REPORT INFORMATION
  Report Type: Spontaneous
  Country: US (occurrence: None)
  Receive Date: 20140306
  Receipt Date: 20140306
  Transmission Date: 20141002
  Serious: Yes (Other)
  Sender: FDA-Public Use
  Company Number: 163-21880-13093672

PATIENT
  Age: 73 Year
  Sex: Female
  Weight: 58.97 kg

DRUGS (18)
  1. REVLIMID (LENALIDOMIDE) (20 MILLIGRAM, CAPSULES) [Suspect]
     Indication: B-CELL LYMPHOMA
     Route: 048
     Dates: start: 20130918, end: 20130921
  2. ACIDOPHILIS (LACTOBACILLUS ACIDOPHILUS) [Concomitant]
  3. ATIVAN (LORAZEPAM) (TABLETS) [Concomitant]
  4. BUPROPION (BUPROPION) (75 MILLIGRAM, TABLETS) [Concomitant]
  5. COLACE (DOCUSATE SODIUM) (100 MILLIGRAM, CAPSULES) [Concomitant]
  6. EVISTA (RALOXIFENE HYDROCHLORIDE) (TABLETS) [Concomitant]
  7. HYDROMORPHONE HCL (HYDROMORPHONE HYDROCHLORIDE) (TABLETS) [Concomitant]
  8. MELATONIN (MELATONIN) [Concomitant]
  9. METHOCARBAMOL (METHOCARBAMOL) (TABLETS) [Concomitant]
  10. MIRALAX (MACROGOL) (TABLETS) [Concomitant]
  11. MULTIVITAMINS (MULTIVITAMINS) (TABLETS) [Concomitant]
  12. NEURONTIN (GABAPENTIN) (100 MILLIGRAM, CAPSULES) [Concomitant]
  13. OMEGA 3 FATTY ACIDS (FISH OIL) (TABLETS) [Concomitant]
  14. OMEPRAZOLE (OMEPRAZOLE) (TABLETS) [Concomitant]
  15. OXYCODONE (OXYCODONE) (TABLETS) [Concomitant]
  16. SYNTHROID (LEVOTHYROXINE SODIUM) (TABLETS) [Concomitant]
  17. VITAMIN B6 (PYRIDOXINE HYDROCHLORIDE) (TABLETS) [Concomitant]
  18. VITAMIN B12 (CYANOCOBALAMIN) [Concomitant]

REACTIONS (5)
  - Pleural effusion [None]
  - Diarrhoea [None]
  - Fatigue [None]
  - Abdominal discomfort [None]
  - Dyspnoea [None]
